FAERS Safety Report 5398337-5 (Version None)
Quarter: 2007Q3

REPORT INFORMATION
  Report Type: 
  Country: None (occurrence: None)
  Receive Date: 20070724
  Receipt Date: 20070710
  Transmission Date: 20080115
  Serious: Yes (Hospitalization)
  Sender: FDA-Public Use
  Company Number: 235716K07USA

PATIENT
  Age: 43 Year
  Sex: Female
  Weight: 77.1115 kg

DRUGS (4)
  1. REBIF [Suspect]
     Indication: MULTIPLE SCLEROSIS
     Dosage: 3 IN 1 WEEKS, SUBCUTANEOUS; 8.8 MCG, 3 IN 1 WEEKS, SUBCUTANEOUS
     Route: 058
     Dates: start: 20060927, end: 20070601
  2. REBIF [Suspect]
     Indication: MULTIPLE SCLEROSIS
     Dosage: 3 IN 1 WEEKS, SUBCUTANEOUS; 8.8 MCG, 3 IN 1 WEEKS, SUBCUTANEOUS
     Route: 058
     Dates: start: 20070601, end: 20070710
  3. CYMBALTA [Concomitant]
  4. LORAZEPAM [Concomitant]

REACTIONS (6)
  - DYSPNOEA [None]
  - FALL [None]
  - GALLBLADDER DISORDER [None]
  - MUSCULAR WEAKNESS [None]
  - PNEUMONIA [None]
  - POST PROCEDURAL COMPLICATION [None]
